FAERS Safety Report 4289309-2 (Version None)
Quarter: 2004Q1

REPORT INFORMATION
  Report Type: 
  Country: None (occurrence: None)
  Receive Date: 20040210
  Receipt Date: 20031201
  Transmission Date: 20041129
  Serious: Yes (Death, Other)
  Sender: FDA-Public Use
  Company Number: PHBS2003CA13516

PATIENT
  Age: 49 Year
  Sex: Female

DRUGS (3)
  1. NEORAL [Suspect]
     Indication: RENAL TRANSPLANT
     Route: 065
  2. PREDNISONE [Suspect]
     Indication: RENAL TRANSPLANT
     Route: 065
  3. AZATHIOPRINE [Suspect]
     Indication: RENAL TRANSPLANT
     Route: 065

REACTIONS (13)
  - CUSHINGOID [None]
  - HAEMODIALYSIS [None]
  - HYPERKERATOSIS [None]
  - INTESTINAL OBSTRUCTION [None]
  - KIDNEY TRANSPLANT REJECTION [None]
  - LENTIGO [None]
  - LYMPHADENOPATHY [None]
  - METASTASIS [None]
  - PITTING OEDEMA [None]
  - RASH ERYTHEMATOUS [None]
  - RENAL IMPAIRMENT [None]
  - SEPSIS [None]
  - SQUAMOUS CELL CARCINOMA OF SKIN [None]
